FAERS Safety Report 4954997-1 (Version None)
Quarter: 2006Q1

REPORT INFORMATION
  Report Type: 
  Country: None (occurrence: None)
  Receive Date: 20060321
  Receipt Date: 20060309
  Transmission Date: 20060701
  Serious: Yes (Hospitalization)
  Sender: FDA-Public Use
  Company Number: 13699

PATIENT
  Age: 42 Year
  Sex: Female

DRUGS (4)
  1. FLUOROURACIL [Suspect]
     Indication: COLORECTAL CANCER
     Dosage: 600 MG ONCE PU
     Dates: end: 20060104
  2. LEUCOVORIN [Suspect]
     Indication: COLORECTAL CANCER
     Dosage: 600 MG PER_CYCLE UNK
     Dates: start: 20060104, end: 20060104
  3. BEVACIZUMAB [Suspect]
     Dosage: 128 MG PER_CYCLE UNK
     Dates: start: 20060104, end: 20060104
  4. OXALIPLATIN [Suspect]
     Dosage: 128 MG PER_CYCLE UNK
     Dates: start: 20060104, end: 20060104

REACTIONS (7)
  - CATHETER RELATED INFECTION [None]
  - CONDITION AGGRAVATED [None]
  - DEVICE FAILURE [None]
  - DIARRHOEA [None]
  - HAEMOGLOBIN DECREASED [None]
  - PYREXIA [None]
  - VOMITING [None]
